FAERS Safety Report 4263836-6 (Version None)
Quarter: 2004Q1

REPORT INFORMATION
  Report Type: 
  Country: None (occurrence: None)
  Receive Date: 20040102
  Receipt Date: 20031215
  Transmission Date: 20041129
  Serious: Yes (Death)
  Sender: FDA-Public Use
  Company Number: FR_031203320

PATIENT
  Age: 82 Year
  Sex: Female

DRUGS (4)
  1. ZYPREXA [Suspect]
     Indication: PSYCHOTIC DISORDER
     Dosage: 7.5 MG/DAY
     Dates: start: 20030401
  2. TERCIAN (CYAMEMAZINE) [Concomitant]
  3. NEULEPTIL (PERICIAZINE) [Concomitant]
  4. TEGRETOL [Concomitant]

REACTIONS (1)
  - DEATH [None]
